FAERS Safety Report 20263536 (Version 1)
Quarter: 2021Q4

REPORT INFORMATION
  Report Type: Spontaneous
  Country: US (occurrence: US)
  Receive Date: 20211231
  Receipt Date: 20211231
  Transmission Date: 20220303
  Serious: Yes (Death, Other)
  Sender: FDA-Public Use
  Company Number: US-UNITED THERAPEUTICS-UNT-2021-026694

PATIENT
  Age: 17 Year
  Sex: Male

DRUGS (12)
  1. ORENITRAM [Suspect]
     Active Substance: TREPROSTINIL
     Indication: Malignant atrophic papulosis
     Dosage: 0.25 MG, BID
     Route: 048
  2. REMODULIN [Suspect]
     Active Substance: TREPROSTINIL
     Indication: Malignant atrophic papulosis
     Dosage: 0.0225 ?G/KG, CONTINUING
     Route: 041
  3. METHYLPREDNISOLONE [Concomitant]
     Active Substance: METHYLPREDNISOLONE
     Indication: Malignant atrophic papulosis
     Dosage: 1000 MG, UNK (FOR 5 DAYS)
     Route: 042
  4. CYCLOPHOSPHAMIDE [Concomitant]
     Active Substance: CYCLOPHOSPHAMIDE
     Indication: Malignant atrophic papulosis
     Dosage: 750 MG/M2 (FREQUENCY UNKNOWN)
     Route: 065
  5. PENTOXIFYLLINE [Concomitant]
     Active Substance: PENTOXIFYLLINE
     Indication: Malignant atrophic papulosis
     Dosage: 400 MG, TID
     Route: 065
  6. ASPIRIN [Concomitant]
     Active Substance: ASPIRIN
     Indication: Malignant atrophic papulosis
     Dosage: 25 MG, FREQUENCY UNKNOWN
     Route: 065
  7. ASPIRIN [Concomitant]
     Active Substance: ASPIRIN
     Dosage: 325 MG, FREQUENCY UNKNOWN
     Route: 065
  8. DIPYRIDAMOLE [Concomitant]
     Active Substance: DIPYRIDAMOLE
     Indication: Malignant atrophic papulosis
     Dosage: 200 MG, FREQUENCY UNKNOWN
     Route: 065
  9. ECULIZUMAB [Concomitant]
     Active Substance: ECULIZUMAB
     Indication: Malignant atrophic papulosis
     Dosage: 1200 MG, 2 TIMES/WK
     Route: 042
  10. PREDNISONE [Concomitant]
     Active Substance: PREDNISONE
     Indication: Malignant atrophic papulosis
     Dosage: 50 MG, FREQUENCY UNKNOWN
     Route: 065
  11. TOCILIZUMAB [Concomitant]
     Active Substance: TOCILIZUMAB
     Indication: Malignant atrophic papulosis
     Dosage: 8 MG/KG, Q4WK
     Route: 042
  12. HEPARIN [Concomitant]
     Active Substance: HEPARIN SODIUM
     Indication: Malignant atrophic papulosis
     Dosage: UNK
     Route: 065

REACTIONS (4)
  - Malignant atrophic papulosis [Fatal]
  - Encephalopathy [Unknown]
  - Nervous system disorder [Unknown]
  - Off label use [Unknown]
